FAERS Safety Report 4947885-8 (Version None)
Quarter: 2006Q1

REPORT INFORMATION
  Report Type: 
  Country: None (occurrence: None)
  Receive Date: 20060317
  Receipt Date: 20060317
  Transmission Date: 20060701
  Serious: Yes (Hospitalization)
  Sender: FDA-Public Use
  Company Number: None

PATIENT
  Age: 53 Year
  Sex: Female
  Weight: 138.8 kg

DRUGS (5)
  1. TRILEPTAL [Suspect]
     Indication: BIPOLAR DISORDER
     Dosage: 150MG   DAILY   PO
     Route: 048
     Dates: start: 20050302, end: 20050304
  2. BUPROPRION HCL [Concomitant]
  3. PANTOPRAZOLE [Concomitant]
  4. FENOFIBRATE [Concomitant]
  5. LEVOTHYROXINE SODIUM [Concomitant]

REACTIONS (1)
  - STEVENS-JOHNSON SYNDROME [None]
